FAERS Safety Report 8650113 (Version 2)
Quarter: 2012Q4

REPORT INFORMATION
  Report Type: 
  Country: JP (occurrence: JP)
  Receive Date: 20120705
  Receipt Date: 20120829
  Transmission Date: 20130627
  Serious: Yes (Hospitalization)
  Sender: FDA-Public Use
  Company Number: JP-B.I. PHARMACEUTICALS,INC./RIDGEFIELD-2012-BP-14668NB

PATIENT
  Age: 90 Year
  Sex: Male

DRUGS (7)
  1. PRAZAXA [Suspect]
     Indication: ATRIAL FIBRILLATION
     Dosage: 150 mg
     Dates: start: 201111, end: 201203
  2. NEODOPASTON [Concomitant]
     Dosage: 200 mg
     Route: 065
  3. ITOROL [Concomitant]
     Dosage: 40 mg
     Route: 065
  4. RYTHMODAN [Concomitant]
     Dosage: 200 mg
     Route: 065
  5. GASMOTIN [Concomitant]
     Dosage: 15 mg
     Route: 065
  6. KIPRES [Concomitant]
     Dosage: 10 mg
     Route: 065
  7. MAGLAX [Concomitant]
     Dosage: 990 mg
     Route: 065

REACTIONS (4)
  - Pneumonia [Unknown]
  - Melaena [Recovered/Resolved]
  - Decubitus ulcer [Unknown]
  - Wrong technique in drug usage process [Recovered/Resolved]
